FAERS Safety Report 14273543 (Version 1)
Quarter: 2017Q4

REPORT INFORMATION
  Report Type: Report from Study
  Country: US (occurrence: ZA)
  Receive Date: 20171212
  Receipt Date: 20171212
  Transmission Date: 20180321
  Serious: Yes (Death, Other)
  Sender: FDA-Public Use
  Company Number: US-SUNOVION-2017SUN005187

PATIENT
  Sex: Male

DRUGS (1)
  1. GLYCOPYRROLATE. [Suspect]
     Active Substance: GLYCOPYRROLATE
     Indication: ASTHMA
     Dosage: 50 ?G, UNK
     Route: 055

REACTIONS (2)
  - Product use in unapproved indication [Unknown]
  - Cardiac arrest [Fatal]
